FAERS Safety Report 23991037 (Version 2)
Quarter: 2024Q2

REPORT INFORMATION
  Report Type: Report from Study
  Country: IT (occurrence: IT)
  Receive Date: 20240619
  Receipt Date: 20240626
  Transmission Date: 20240715
  Serious: Yes (Other)
  Sender: FDA-Public Use
  Company Number: None

PATIENT
  Age: 73 Year
  Sex: Male
  Weight: 73 kg

DRUGS (3)
  1. MESNA [Suspect]
     Active Substance: MESNA
     Indication: Prophylaxis
     Dosage: 5000 MG IN PUMP 4 DAYS TOGETHER WITH IFOSFAMIDE
     Route: 042
     Dates: start: 20240513, end: 20240516
  2. IFOSFAMIDE [Suspect]
     Active Substance: IFOSFAMIDE
     Indication: Soft tissue sarcoma
     Dosage: 5000 MG IN PUMP 4 DAYS, (DOSAGE FORM: POWDER FOR CONCENTRATE FOR SOLUTION FOR INJECTION/INFUSION)
     Route: 042
     Dates: start: 20240513, end: 20240516
  3. EPIRUBICIN HYDROCHLORIDE [Suspect]
     Active Substance: EPIRUBICIN HYDROCHLORIDE
     Indication: Soft tissue sarcoma
     Dosage: 90 MG EVERY 21 DAYS
     Route: 042
     Dates: start: 20240513, end: 20240513

REACTIONS (2)
  - Neutropenia [Recovered/Resolved]
  - Off label use [Recovered/Resolved]

NARRATIVE: CASE EVENT DATE: 20240513
